FAERS Safety Report 24589410 (Version 1)
Quarter: 2024Q4

REPORT INFORMATION
  Report Type: Spontaneous
  Country: CN (occurrence: CN)
  Receive Date: 20241107
  Receipt Date: 20241107
  Transmission Date: 20250115
  Serious: Yes (Other)
  Sender: MERCK
  Company Number: CN-009507513-2411CHN000449

PATIENT
  Age: 70 Year
  Sex: Male
  Weight: 60 kg

DRUGS (8)
  1. CILASTATIN SODIUM\IMIPENEM [Suspect]
     Active Substance: CILASTATIN SODIUM\IMIPENEM
     Indication: Septic shock
     Dosage: 0.5 G, Q8H
     Route: 041
     Dates: start: 20240918, end: 20240920
  2. OMEPRAZOLE SODIUM [Suspect]
     Active Substance: OMEPRAZOLE SODIUM
     Indication: Prophylaxis
     Dosage: 60 MG, QD
     Route: 041
     Dates: start: 20240918, end: 20240920
  3. AMBROXOL HYDROCHLORIDE\CLENBUTEROL [Concomitant]
     Active Substance: AMBROXOL HYDROCHLORIDE\CLENBUTEROL
     Dosage: 30 MG, ST
     Route: 041
     Dates: start: 20240918
  4. GLUTATHIONE [Concomitant]
     Active Substance: GLUTATHIONE
     Dosage: 1.8 G, QD
     Route: 041
     Dates: start: 20240918
  5. SODIUM CHLORIDE [Concomitant]
     Active Substance: SODIUM CHLORIDE
     Dosage: 100 ML, QD
     Route: 041
     Dates: start: 20240918, end: 20240920
  6. SODIUM CHLORIDE [Concomitant]
     Active Substance: SODIUM CHLORIDE
     Dosage: 100 ML, ST
     Route: 041
     Dates: start: 20240918
  7. SODIUM CHLORIDE [Concomitant]
     Active Substance: SODIUM CHLORIDE
     Dosage: 250 ML, QD
     Route: 041
     Dates: start: 20240918
  8. SODIUM CHLORIDE [Concomitant]
     Active Substance: SODIUM CHLORIDE
     Dosage: 100 ML, Q8H
     Route: 041
     Dates: start: 20240918, end: 20240920

REACTIONS (1)
  - Drug-induced liver injury [Recovering/Resolving]

NARRATIVE: CASE EVENT DATE: 20240919
